FAERS Safety Report 9626756 (Version 1)
Quarter: 2013Q4

REPORT INFORMATION
  Report Type: Spontaneous
  Country: BR (occurrence: BR)
  Receive Date: 20131016
  Receipt Date: 20131016
  Transmission Date: 20140711
  Serious: Yes (Other)
  Sender: FDA-Public Use
  Company Number: PHHY2013BR115711

PATIENT
  Age: 41 Year
  Sex: Female

DRUGS (4)
  1. TEGRETOL [Suspect]
     Indication: CONVULSION
     Dosage: 1.5 DF (100 MG EACH) DAILY
     Route: 048
  2. TEGRETOL [Suspect]
     Dosage: 1 DF (200 MG EACH), QID
     Route: 048
  3. HIDANTAL [Suspect]
     Indication: CONVULSION
     Dosage: 1 DF, BID (1 TABLET IN THE MORNING AND 1 TABLET IN THE AFTERNOON)
     Route: 048
  4. FRISIUM [Suspect]
     Indication: ANXIETY
     Dosage: 20 MG, AT NIGHT
     Route: 048

REACTIONS (4)
  - Multiple sclerosis [Recovered/Resolved]
  - Convulsion [Recovered/Resolved]
  - Loss of consciousness [Recovered/Resolved]
  - Weight increased [Not Recovered/Not Resolved]
